FAERS Safety Report 13523488 (Version 1)
Quarter: 2017Q2

REPORT INFORMATION
  Report Type: Spontaneous
  Country: US (occurrence: US)
  Receive Date: 20170508
  Receipt Date: 20170508
  Transmission Date: 20170830
  Serious: No
  Sender: FDA-Public Use
  Company Number: US-PFIZER INC-2017198710

PATIENT
  Sex: Female

DRUGS (2)
  1. NORVASC [Interacting]
     Active Substance: AMLODIPINE BESYLATE
  2. AROMASIN [Suspect]
     Active Substance: EXEMESTANE
     Dosage: 25 MG, DAILY

REACTIONS (8)
  - Burning sensation [Unknown]
  - Hot flush [Unknown]
  - Peripheral swelling [Unknown]
  - Asthenia [Unknown]
  - Drug interaction [Unknown]
  - Feeling hot [Unknown]
  - Joint range of motion decreased [Unknown]
  - Erythema [Unknown]
